FAERS Safety Report 10036534 (Version 3)
Quarter: 2014Q2

REPORT INFORMATION
  Report Type: Spontaneous
  Country: SI (occurrence: SI)
  Receive Date: 20140326
  Receipt Date: 20140430
  Transmission Date: 20141212
  Serious: Yes (Hospitalization, Other)
  Sender: FDA-Public Use
  Company Number: SI-AMGEN-SVNSP2014020969

PATIENT
  Age: 55 Year
  Sex: Male
  Weight: 80 kg

DRUGS (2)
  1. ENBREL [Suspect]
     Indication: ANKYLOSING SPONDYLITIS
     Dosage: 50 MG, WEEKLY
     Route: 058
     Dates: start: 20071130, end: 20140103
  2. NAKLOFEN DUO [Concomitant]
     Dosage: 75 MG, 1X/DAY

REACTIONS (2)
  - Erythema nodosum [Recovered/Resolved with Sequelae]
  - Pulmonary sarcoidosis [Recovered/Resolved with Sequelae]
